FAERS Safety Report 10608049 (Version 1)
Quarter: 2014Q4

REPORT INFORMATION
  Report Type: Spontaneous
  Country: US (occurrence: US)
  Receive Date: 20141125
  Receipt Date: 20141125
  Transmission Date: 20150529
  Serious: No
  Sender: FDA-Public Use
  Company Number: US-BRISTOL-MYERS SQUIBB COMPANY-21252895

PATIENT
  Age: 40 Year
  Sex: Female
  Weight: 68.03 kg

DRUGS (6)
  1. FARXIGA [Suspect]
     Active Substance: DAPAGLIFLOZIN PROPANEDIOL
     Indication: TYPE 1 DIABETES MELLITUS
     Dosage: TABLETS
     Route: 048
     Dates: start: 20140725
  2. ENALAPRIL [Concomitant]
     Active Substance: ENALAPRIL
  3. ENALAPRIL [Concomitant]
     Active Substance: ENALAPRIL
  4. INSULIN [Concomitant]
     Active Substance: INSULIN NOS
     Indication: TYPE 1 DIABETES MELLITUS
     Dosage: DOSAGE FORM=UNITS?40 UNITS INMORNING?30 UNITS IN EVENING.?27-JUL-2014 TOOK 5 UNITS LESS
  5. PRAVASTATIN SODIUM. [Concomitant]
     Active Substance: PRAVASTATIN SODIUM
  6. HUMALOG [Concomitant]
     Active Substance: INSULIN LISPRO
     Indication: DIABETES MELLITUS

REACTIONS (2)
  - Dizziness [Unknown]
  - Vulvovaginal discomfort [Recovered/Resolved]

NARRATIVE: CASE EVENT DATE: 20140726
